FAERS Safety Report 8531941-1 (Version None)
Quarter: 2012Q3

REPORT INFORMATION
  Report Type: 
  Country: None (occurrence: None)
  Receive Date: 20120723
  Receipt Date: 20120709
  Transmission Date: 20120928
  Serious: Yes (Disabling)
  Sender: FDA-Public Use
  Company Number: CA-MSD-1207CAN008000

PATIENT

DRUGS (4)
  1. VALPROATE SODIUM [Concomitant]
     Indication: PRODUCT USED FOR UNKNOWN INDICATION
     Dosage: 1000 MG, QD
     Route: 048
  2. EFFEXOR [Concomitant]
     Indication: PRODUCT USED FOR UNKNOWN INDICATION
     Dosage: 75 MG, QD
     Route: 048
  3. CLONAZEPAM [Concomitant]
     Dosage: 30 MG, QD
     Route: 048
  4. SAPHRIS [Suspect]
     Indication: BIPOLAR DISORDER
     Dosage: 10 MG, BID
     Route: 060
     Dates: start: 20120616

REACTIONS (8)
  - IRRITABILITY [None]
  - PSYCHOMOTOR HYPERACTIVITY [None]
  - PANIC ATTACK [None]
  - GINGIVAL SWELLING [None]
  - VISION BLURRED [None]
  - FEELING ABNORMAL [None]
  - SWOLLEN TONGUE [None]
  - ANXIETY [None]
